FAERS Safety Report 6968459-3 (Version None)
Quarter: 2010Q3

REPORT INFORMATION
  Report Type: 
  Country: None (occurrence: None)
  Receive Date: 20100907
  Receipt Date: 20100826
  Transmission Date: 20110219
  Serious: Yes (Other)
  Sender: FDA-Public Use
  Company Number: PHHY2010FR57182

PATIENT
  Age: 17 Year
  Sex: Male

DRUGS (3)
  1. RITALIN [Suspect]
     Indication: ATTENTION DEFICIT/HYPERACTIVITY DISORDER
     Dosage: 30 MG, QD
  2. RITALIN [Suspect]
     Indication: ATTENTION DEFICIT/HYPERACTIVITY DISORDER
     Dosage: 20 MG DAILY
  3. MINIRIN [Concomitant]

REACTIONS (4)
  - ACCIDENT [None]
  - CLAVICLE FRACTURE [None]
  - DIARRHOEA [None]
  - PETIT MAL EPILEPSY [None]
